FAERS Safety Report 4358438-7 (Version None)
Quarter: 2004Q2

REPORT INFORMATION
  Report Type: 
  Country: None (occurrence: None)
  Receive Date: 20040511
  Receipt Date: 20040429
  Transmission Date: 20050107
  Serious: Yes (Death)
  Sender: FDA-Public Use
  Company Number: US-JNJFOC-20040500087

PATIENT
  Age: 39 Year
  Sex: Male

DRUGS (4)
  1. DURAGESIC [Suspect]
     Indication: PAIN
     Dosage: 50 UG/HR, 1 IN 72 HOUR, TRANSDERMAL
     Route: 062
     Dates: start: 20040212, end: 20040219
  2. MS CONTIN [Suspect]
     Indication: PAIN
     Dosage: 15 MG, 2 IN 1 DAY, ORAL
     Route: 048
     Dates: start: 20040212
  3. NEURONTIN [Concomitant]
  4. AMBIEN [Concomitant]

REACTIONS (8)
  - ACCIDENT [None]
  - DIZZINESS [None]
  - DRUG LEVEL INCREASED [None]
  - DRUG TOXICITY [None]
  - FEELING ABNORMAL [None]
  - NAUSEA [None]
  - PHARMACEUTICAL PRODUCT COMPLAINT [None]
  - VOMITING [None]
